FAERS Safety Report 5018951-6 (Version None)
Quarter: 2006Q2

REPORT INFORMATION
  Report Type: 
  Country: None (occurrence: None)
  Receive Date: 20060531
  Receipt Date: 20060522
  Transmission Date: 20061013
  Serious: Yes (Life-Threatening)
  Sender: FDA-Public Use
  Company Number: 221259

PATIENT
  Sex: Male
  Weight: 83.3 kg

DRUGS (2)
  1. AVASTIN [Suspect]
     Indication: ANAPLASTIC ASTROCYTOMA
     Dosage: 1130 MG, INTRAVENOUS
     Route: 042
     Dates: start: 20051202, end: 20051216
  2. IRINOTECAN HCL [Suspect]
     Indication: ANAPLASTIC ASTROCYTOMA
     Dosage: 697 MG, INTRAVENOUS
     Route: 042
     Dates: start: 20051202, end: 20051216

REACTIONS (1)
  - DRUG HYPERSENSITIVITY [None]
